FAERS Safety Report 8061692-1 (Version None)
Quarter: 2012Q1

REPORT INFORMATION
  Report Type: 
  Country: None (occurrence: None)
  Receive Date: 20120123
  Receipt Date: 20120112
  Transmission Date: 20120608
  Serious: Yes (Death, Hospitalization, Other)
  Sender: FDA-Public Use
  Company Number: US-BIOGENIDEC-2011BI049143

PATIENT
  Sex: Female

DRUGS (2)
  1. TYSABRI [Suspect]
     Indication: MULTIPLE SCLEROSIS
     Route: 042
     Dates: start: 20110209, end: 20111130
  2. TYSABRI [Suspect]
     Route: 042
     Dates: start: 20071212, end: 20080408

REACTIONS (4)
  - FALL [None]
  - DEATH [None]
  - COMPARTMENT SYNDROME [None]
  - RENAL FAILURE [None]
